FAERS Safety Report 7973070 (Version 2)
Quarter: 2013Q4

REPORT INFORMATION
  Report Type: Spontaneous
  Country: US (occurrence: US)
  Receive Date: 20110603
  Receipt Date: 20131226
  Transmission Date: 20140711
  Serious: Yes (Other)
  Sender: FDA-Public Use
  Company Number: US-BAYER-2011-047216

PATIENT
  Age: 25 Year
  Sex: Female

DRUGS (9)
  1. YAZ [Suspect]
     Indication: PRODUCT USED FOR UNKNOWN INDICATION
     Dosage: UNK
     Route: 048
     Dates: start: 200802, end: 200910
  2. YASMIN [Suspect]
     Indication: PRODUCT USED FOR UNKNOWN INDICATION
     Dosage: UNK
     Route: 048
     Dates: start: 200802, end: 200910
  3. NAPROXEN SODIUM [Concomitant]
     Dosage: 550 MG, UNK
  4. AZITHROMYCIN [Concomitant]
     Dosage: 250 MG, UNK
  5. TRAZODONE [Concomitant]
     Dosage: 100 MG, UNK
  6. POLYETHYLENE GLYCOL [Concomitant]
  7. PANTOPRAZOLE SODIUM [Concomitant]
     Dosage: 40 MG, UNK
  8. BUPROPION HYDROCHLORIDE [Concomitant]
     Dosage: 300 MG, UNK
  9. DICYCLOMINE [Concomitant]
     Dosage: 10 MG, UNK

REACTIONS (8)
  - Emotional distress [None]
  - Anxiety [None]
  - Psychological trauma [None]
  - Fear [None]
  - Gallbladder disorder [None]
  - Cholecystitis chronic [None]
  - Injury [None]
  - Pain [None]
